FAERS Safety Report 22397769 (Version 1)
Quarter: 2023Q2

REPORT INFORMATION
  Report Type: Spontaneous
  Country: US (occurrence: US)
  Receive Date: 20230602
  Receipt Date: 20230602
  Transmission Date: 20230721
  Serious: Yes (Death)
  Sender: FDA-Public Use
  Company Number: US-SA-2023SA166168

PATIENT
  Age: 21 Year
  Sex: Female

DRUGS (2)
  1. DIPHENHYDRAMINE [Suspect]
     Active Substance: DIPHENHYDRAMINE
     Indication: Suicide attempt
     Dosage: 50 MG (SOFT GEL, 50 MG, 160 PILLS MISSING)
  2. MELATONIN [Suspect]
     Active Substance: MELATONIN
     Indication: Suicide attempt
     Dosage: 10 MG N (FAST DISSOLVE, 10 MG, UP TO 48 PILLS MISSING)

REACTIONS (6)
  - Toxicity to various agents [Fatal]
  - Gastrointestinal tract mucosal discolouration [Fatal]
  - Pulmonary congestion [Fatal]
  - Pleural effusion [Fatal]
  - Brain oedema [Fatal]
  - Intentional overdose [Fatal]
